FAERS Safety Report 21433340 (Version 5)
Quarter: 2023Q1

REPORT INFORMATION
  Report Type: Spontaneous
  Country: US (occurrence: US)
  Receive Date: 20221010
  Receipt Date: 20230110
  Transmission Date: 20230418
  Serious: Yes (Other)
  Sender: FDA-Public Use
  Company Number: US-GLAXOSMITHKLINE-US2022141224

PATIENT

DRUGS (8)
  1. ZEJULA [Suspect]
     Active Substance: NIRAPARIB
     Indication: Ovarian cancer
     Dosage: 200 MG, QD
     Route: 048
     Dates: start: 20220913
  2. ZEJULA [Suspect]
     Active Substance: NIRAPARIB
     Dosage: 200 MG, QD
  3. ZEJULA [Suspect]
     Active Substance: NIRAPARIB
     Dosage: 200 MG, QD
     Route: 048
     Dates: end: 20221110
  4. ZEJULA [Suspect]
     Active Substance: NIRAPARIB
     Dosage: 100 MG, QD
     Dates: start: 20221201, end: 20221207
  5. ZEJULA [Suspect]
     Active Substance: NIRAPARIB
     Dosage: 100 MG, QD
     Dates: start: 20230101
  6. TRIAMCINOLONE OINTMENT [Concomitant]
     Indication: Rash
     Dosage: UNK
  7. CORTIZONE 10 [Concomitant]
     Active Substance: HYDROCORTISONE
     Indication: Rash
     Dosage: UNK
  8. CALAMINE LOTION [Concomitant]
     Active Substance: CALAMINE LOTION
     Indication: Rash
     Dosage: UNK

REACTIONS (14)
  - Neuropathy peripheral [Unknown]
  - Blood potassium decreased [Not Recovered/Not Resolved]
  - Decreased appetite [Unknown]
  - Insomnia [Not Recovered/Not Resolved]
  - Heart rate increased [Unknown]
  - Pruritus [Unknown]
  - Illness [Unknown]
  - Nausea [Recovering/Resolving]
  - Vomiting [Unknown]
  - Dyspnoea [Unknown]
  - Anaemia [Unknown]
  - Platelet disorder [Unknown]
  - Diarrhoea [Unknown]
  - Weight decreased [Unknown]

NARRATIVE: CASE EVENT DATE: 20220901
